FAERS Safety Report 5169929-3 (Version None)
Quarter: 2006Q4

REPORT INFORMATION
  Report Type: 
  Country: None (occurrence: None)
  Receive Date: 20061212
  Receipt Date: 20061130
  Transmission Date: 20070319
  Serious: Yes (Hospitalization)
  Sender: FDA-Public Use
  Company Number: FR-ROCHE-473592

PATIENT
  Age: 32 Year
  Sex: Female
  Weight: 66 kg

DRUGS (4)
  1. INVIRASE [Suspect]
     Route: 048
     Dates: start: 19961014
  2. INVIRASE [Suspect]
     Dosage: DECREASED DOSE.
     Route: 048
  3. NORVIR [Suspect]
     Route: 048
     Dates: start: 19961014
  4. NORVIR [Suspect]
     Dosage: DECREASED DOSE.
     Route: 048

REACTIONS (1)
  - BRONCHOSPASM [None]
